FAERS Safety Report 6548989-9 (Version None)
Quarter: 2010Q1

REPORT INFORMATION
  Report Type: 
  Country: None (occurrence: None)
  Receive Date: 20100125
  Receipt Date: 20100111
  Transmission Date: 20100710
  Serious: Yes (Death, Other)
  Sender: FDA-Public Use
  Company Number: AU-ORACLE-2010S1000014

PATIENT
  Age: 76 Year
  Sex: Male

DRUGS (1)
  1. CUBICIN [Suspect]
     Indication: ENTEROCOCCAL BACTERAEMIA
     Route: 065
     Dates: start: 20091202

REACTIONS (5)
  - CARDIAC ARREST [None]
  - DRUG INEFFECTIVE [None]
  - ENTEROCOCCAL BACTERAEMIA [None]
  - LOWER RESPIRATORY TRACT INFECTION [None]
  - URINARY TRACT INFECTION [None]
